FAERS Safety Report 20845811 (Version 1)
Quarter: 2022Q2

REPORT INFORMATION
  Report Type: Report from Study
  Country: US (occurrence: US)
  Receive Date: 20220518
  Receipt Date: 20220518
  Transmission Date: 20220720
  Serious: Yes (Other)
  Sender: FDA-Public Use
  Company Number: US-BRISTOL-MYERS SQUIBB COMPANY-2022-019117

PATIENT
  Age: 60 Year
  Sex: Female
  Weight: 124.7 kg

DRUGS (2)
  1. POMALYST [Suspect]
     Active Substance: POMALIDOMIDE
     Indication: Plasma cell myeloma
     Dosage: DAILY FOR 3 WEEKS EVERY 4 WEEKS.
     Route: 048
     Dates: start: 20210811
  2. POMALYST [Suspect]
     Active Substance: POMALIDOMIDE
     Route: 065

REACTIONS (3)
  - Urinary tract infection [Unknown]
  - Somnolence [Unknown]
  - Cellulitis [Unknown]
